FAERS Safety Report 7389577-4 (Version None)
Quarter: 2011Q2

REPORT INFORMATION
  Report Type: 
  Country: None (occurrence: None)
  Receive Date: 20110401
  Receipt Date: 20110329
  Transmission Date: 20111010
  Serious: Yes (Death)
  Sender: FDA-Public Use
  Company Number: PHHY2011US25176

PATIENT
  Sex: Male
  Weight: 88 kg

DRUGS (2)
  1. EXJADE [Suspect]
     Indication: TRACHEAL CANCER
  2. EXJADE [Suspect]
     Indication: BRONCHIAL CARCINOMA
     Dosage: 1500 MG, QD
     Route: 048
     Dates: start: 20101124

REACTIONS (1)
  - LUNG NEOPLASM MALIGNANT [None]
